FAERS Safety Report 4541624-0 (Version None)
Quarter: 2004Q4

REPORT INFORMATION
  Report Type: 
  Country: None (occurrence: None)
  Receive Date: 20041227
  Receipt Date: 20041215
  Transmission Date: 20050328
  Serious: Yes (Hospitalization)
  Sender: FDA-Public Use
  Company Number: 2004115972

PATIENT
  Age: 61 Year
  Sex: Female

DRUGS (4)
  1. SPIRONOLACTONE [Suspect]
     Indication: ILL-DEFINED DISORDER
     Dosage: ORAL
     Route: 048
  2. FUROSEMIDE [Suspect]
     Indication: ILL-DEFINED DISORDER
     Dosage: ORAL
     Route: 048
  3. LANSOPRAZOLE [Suspect]
     Indication: ILL-DEFINED DISORDER
     Dosage: ORAL
     Route: 048
  4. BOSENTAN (BOSENTAN) [Suspect]
     Indication: ILL-DEFINED DISORDER
     Dosage: 125 MG (62.5 MG, 2 D), ORAL
     Route: 048

REACTIONS (3)
  - ANAEMIA [None]
  - CONDITION AGGRAVATED [None]
  - THROMBOCYTOPENIA [None]
